FAERS Safety Report 9370116 (Version 1)
Quarter: 2013Q2

REPORT INFORMATION
  Report Type: Spontaneous
  Country: US (occurrence: None)
  Receive Date: 20130621
  Receipt Date: 20130621
  Transmission Date: 20140414
  Serious: Yes (Other)
  Sender: FDA-Public Use
  Company Number: ACO_36786_2013

PATIENT
  Sex: Female

DRUGS (4)
  1. AMPYRA (DALFAMPRIDINE) TABLET, 10MG [Suspect]
     Indication: MULTIPLE SCLEROSIS
     Dates: end: 2013
  2. AMPYRA (DALFAMPRIDINE) TABLET, 10MG [Suspect]
     Indication: GAIT DISTURBANCE
     Dates: end: 2013
  3. DETROL LA (TOLTERODINE L-TARTRATE) [Concomitant]
  4. GILENYA (FINGOLIMOD HYDROCHLORIDE) [Concomitant]

REACTIONS (4)
  - Convulsion [None]
  - Pyrexia [None]
  - Insomnia [None]
  - Dizziness [None]
